FAERS Safety Report 5121803-4 (Version None)
Quarter: 2006Q4

REPORT INFORMATION
  Report Type: 
  Country: None (occurrence: None)
  Receive Date: 20061006
  Receipt Date: 20060927
  Transmission Date: 20070319
  Serious: Yes (Life-Threatening)
  Sender: FDA-Public Use
  Company Number: GR-AVENTIS-200620090GDDC

PATIENT
  Age: 60 Year
  Sex: Female

DRUGS (6)
  1. ARAVA [Suspect]
     Indication: ARTHRITIS
     Route: 048
  2. KINERET [Concomitant]
     Indication: ARTHRITIS
     Dosage: DOSE: UNK
     Route: 058
  3. HUMIRA [Concomitant]
     Indication: ARTHRITIS
     Dosage: DOSE: UNK
     Route: 058
  4. PREDNISOLONE [Concomitant]
     Dosage: DOSE: UNK
  5. METHOTREXATE [Concomitant]
     Dosage: DOSE: UNK
  6. CYCLOSPORINE [Concomitant]
     Dosage: DOSE: UNK

REACTIONS (1)
  - MALIGNANT MELANOMA [None]
